FAERS Safety Report 23122306 (Version 2)
Quarter: 2024Q4

REPORT INFORMATION
  Report Type: Spontaneous
  Country: US (occurrence: US)
  Receive Date: 20231030
  Receipt Date: 20241016
  Transmission Date: 20250115
  Serious: No
  Sender: RANBAXY
  Company Number: US-SUN PHARMACEUTICAL INDUSTRIES LTD-2023R1-402964

PATIENT
  Sex: Female

DRUGS (1)
  1. XELPROS [Suspect]
     Active Substance: LATANOPROST
     Indication: Glaucoma
     Dosage: UNK
     Route: 047
     Dates: start: 20240418

REACTIONS (7)
  - Eye irritation [Unknown]
  - Eye pain [Unknown]
  - Product dispensing error [Unknown]
  - Product availability issue [Unknown]
  - Product use issue [Unknown]
  - Product use complaint [Unknown]
  - Product packaging issue [Unknown]
